FAERS Safety Report 9388221 (Version 1)
Quarter: 2013Q3

REPORT INFORMATION
  Report Type: Spontaneous
  Country: DE (occurrence: DE)
  Receive Date: 20130708
  Receipt Date: 20130708
  Transmission Date: 20140515
  Serious: Yes (Hospitalization, Other)
  Sender: FDA-Public Use
  Company Number: DE-TEVA-416243GER

PATIENT
  Age: 48 Year
  Sex: Male

DRUGS (10)
  1. DIAZEPAM-RATIOPHARM 10 MG/ML TROPFEN [Suspect]
     Dosage: 20 GTT DAILY;
     Route: 048
  2. DIAZEPAM-RATIOPHARM 10 MG/ML TROPFEN [Suspect]
     Route: 048
     Dates: end: 201301
  3. ZOPICLONE [Suspect]
     Dosage: 1 DOSAGE FORMS DAILY; 0-0-1
     Route: 048
     Dates: start: 2003
  4. ZOPICLONE [Suspect]
     Dosage: 1 DOSAGE FORMS DAILY; 0-0-2
     Route: 048
  5. ZOPICLONE [Suspect]
     Dosage: 1 DOSAGE FORMS DAILY; 0-0-1.5
     Route: 048
  6. MIRTAZAPIN [Concomitant]
  7. BISOPROLOL [Concomitant]
  8. MESALAZIN [Concomitant]
  9. PANTOPRAZOL [Concomitant]
     Dates: start: 201301
  10. DRUGS FOR OBSTRUCTIVE AIRWAY DISEASES [Concomitant]
     Indication: BRONCHIAL DISORDER

REACTIONS (15)
  - Crohn^s disease [Recovering/Resolving]
  - Drug withdrawal syndrome [Recovering/Resolving]
  - Drug dependence [Unknown]
  - Depressive symptom [Recovering/Resolving]
  - Sleep disorder [Recovering/Resolving]
  - Photosensitivity reaction [Recovering/Resolving]
  - Hyperacusis [Recovering/Resolving]
  - Personality change [Recovering/Resolving]
  - Aggression [Recovering/Resolving]
  - Irritability [Recovering/Resolving]
  - Muscle twitching [Recovering/Resolving]
  - Tachycardia [Recovering/Resolving]
  - Tinnitus [Recovering/Resolving]
  - Deafness [Recovering/Resolving]
  - Off label use [Unknown]
